FAERS Safety Report 13961612 (Version 1)
Quarter: 2017Q3

REPORT INFORMATION
  Report Type: Spontaneous
  Country: FR (occurrence: FR)
  Receive Date: 20170912
  Receipt Date: 20170912
  Transmission Date: 20171128
  Serious: Yes (Death, Other)
  Sender: FDA-Public Use
  Company Number: FR-PFIZER INC-2017387459

PATIENT
  Age: 52 Year
  Sex: Male

DRUGS (10)
  1. MACROGOL 3350 [Suspect]
     Active Substance: POLYETHYLENE GLYCOL 3350
     Indication: CONSTIPATION
     Dosage: 2 DF, DAILY
     Route: 048
     Dates: start: 20170803
  2. MEDROL [Suspect]
     Active Substance: METHYLPREDNISOLONE
     Indication: MENINGITIS TUBERCULOUS
     Dosage: 100 MG, 1X/DAY
     Route: 048
     Dates: start: 20170801
  3. ANCOTIL [Suspect]
     Active Substance: FLUCYTOSINE
     Indication: FUNGAL INFECTION
     Dosage: 1.4 G, 4X/DAY
     Route: 042
     Dates: start: 20170808, end: 20170822
  4. INSULIN [Suspect]
     Active Substance: INSULIN NOS
     Indication: BLOOD GLUCOSE INCREASED
     Dosage: UNK
     Route: 058
     Dates: start: 20170720
  5. FUNGIZONE [Suspect]
     Active Substance: AMPHOTERICIN B
     Indication: FUNGAL INFECTION
     Dosage: 172 MG, DAILY
     Route: 042
     Dates: start: 20170808, end: 20170822
  6. LOVENOX [Suspect]
     Active Substance: ENOXAPARIN SODIUM
     Indication: THROMBOSIS PROPHYLAXIS
     Dosage: 1 DF, 1X/DAY
     Route: 058
     Dates: start: 20170717, end: 20170817
  7. ETHAMBUTOL [Suspect]
     Active Substance: ETHAMBUTOL HYDROCHLORIDE
     Indication: MENINGITIS TUBERCULOUS
     Dosage: 1 G, DAILY
     Route: 048
     Dates: start: 20170729
  8. PIRILENE [Suspect]
     Active Substance: PYRAZINAMIDE
     Indication: MENINGITIS TUBERCULOUS
     Dosage: 1.5 G, 1X/DAY
     Route: 048
     Dates: start: 20170729
  9. RIMIFON [Suspect]
     Active Substance: ISONIAZID
     Indication: MENINGITIS TUBERCULOUS
     Dosage: 300 MG, 1X/DAY
     Route: 048
     Dates: start: 20170729
  10. IZILOX [Suspect]
     Active Substance: MOXIFLOXACIN HYDROCHLORIDE
     Indication: MENINGITIS TUBERCULOUS
     Dosage: 400 MG, 1X/DAY
     Route: 048
     Dates: start: 20170729

REACTIONS (3)
  - Thrombocytopenia [Not Recovered/Not Resolved]
  - Acute respiratory failure [Fatal]
  - Pulmonary embolism [Fatal]

NARRATIVE: CASE EVENT DATE: 201708
